FAERS Safety Report 9838317 (Version 5)
Quarter: 2014Q1

REPORT INFORMATION
  Report Type: Spontaneous
  Country: JP (occurrence: JP)
  Receive Date: 20140123
  Receipt Date: 20140331
  Transmission Date: 20141002
  Serious: Yes (Other)
  Sender: FDA-Public Use
  Company Number: JP-UCBSA-109097

PATIENT
  Age: 61 Year
  Sex: Male

DRUGS (13)
  1. E KEPPRA [Suspect]
     Indication: EPILEPSY
     Route: 048
     Dates: start: 20140110
  2. E KEPPRA [Suspect]
     Indication: EPILEPSY
     Route: 048
     Dates: start: 20140110
  3. E KEPPRA [Suspect]
     Indication: EPILEPSY
     Route: 048
     Dates: start: 20130319, end: 20140109
  4. E KEPPRA [Suspect]
     Indication: EPILEPSY
     Route: 048
     Dates: start: 20130319, end: 20140109
  5. E KEPPRA [Suspect]
     Indication: EPILEPSY
     Dosage: DOSE STRENGTH: 500 MG
     Route: 048
     Dates: start: 20130306, end: 20130318
  6. E KEPPRA [Suspect]
     Indication: EPILEPSY
     Dosage: DOSE STRENGTH: 500 MG
     Route: 048
     Dates: start: 20130306, end: 20130318
  7. DEPAKENE R [Suspect]
     Indication: EPILEPSY
     Dosage: 600 MG DAILY
     Route: 048
     Dates: start: 20130126
  8. DEPAKENE R [Suspect]
     Indication: EPILEPSY
     Dosage: 400 MG DAILY
     Route: 048
     Dates: start: 20130105, end: 20130125
  9. DEPAKENE R [Suspect]
     Indication: EPILEPSY
     Dosage: 200 MG DAILY
     Route: 048
     Dates: start: 20130101, end: 20130104
  10. AMLODIPINE [Concomitant]
     Dosage: 10 MG DAILY
     Route: 048
     Dates: start: 20120823
  11. FUROSEMIDE [Concomitant]
     Dosage: 20 MG DAILY
     Route: 048
     Dates: start: 20120927
  12. FEBURIC [Concomitant]
     Dosage: 20 MG DAILY
     Route: 048
     Dates: start: 20120823
  13. EBRANTIL [Concomitant]
     Route: 048
     Dates: start: 20120823

REACTIONS (2)
  - Hyperamylasaemia [Recovering/Resolving]
  - Weight decreased [Unknown]
